FAERS Safety Report 5553647-3 (Version None)
Quarter: 2007Q4

REPORT INFORMATION
  Report Type: 
  Country: None (occurrence: None)
  Receive Date: 20071213
  Receipt Date: 20071205
  Transmission Date: 20080405
  Serious: Yes (Other)
  Sender: FDA-Public Use
  Company Number: PHEH2006US11914

PATIENT
  Age: 49 Year
  Sex: Female
  Weight: 58.049 kg

DRUGS (8)
  1. ZOMETA [Suspect]
     Indication: METASTASES TO BONE
     Dosage: UNK, QMO
     Dates: start: 20010101, end: 20040907
  2. AREDIA [Suspect]
     Indication: BREAST CANCER
  3. RADIATION THERAPY [Concomitant]
  4. VICODIN [Concomitant]
     Indication: PAIN IN JAW
  5. FEMARA [Concomitant]
     Indication: BREAST CANCER
     Dosage: 2.5 MG, QD
     Route: 048
  6. CELEXA [Concomitant]
  7. COUMADIN [Concomitant]
  8. SIMVASTATIN [Concomitant]
     Dosage: 20 MG, QD
     Route: 048

REACTIONS (14)
  - ANXIETY [None]
  - BIOPSY BREAST ABNORMAL [None]
  - BREAST CANCER METASTATIC [None]
  - DECREASED INTEREST [None]
  - DEFORMITY [None]
  - DENTAL CARIES [None]
  - EMOTIONAL DISTRESS [None]
  - GENERAL PHYSICAL HEALTH DETERIORATION [None]
  - MASTECTOMY [None]
  - ORAL INTAKE REDUCED [None]
  - OSTEONECROSIS [None]
  - PAIN [None]
  - PAIN IN JAW [None]
  - TOOTH EXTRACTION [None]
